FAERS Safety Report 5333959-9 (Version None)
Quarter: 2007Q2

REPORT INFORMATION
  Report Type: 
  Country: None (occurrence: None)
  Receive Date: 20070524
  Receipt Date: 20070522
  Transmission Date: 20071010
  Serious: Yes (Death)
  Sender: FDA-Public Use
  Company Number: ES-SANOFI-SYNTHELABO-F01200700675

PATIENT
  Sex: Male

DRUGS (3)
  1. BEVACIZUMAB [Suspect]
     Route: 042
     Dates: start: 20070215, end: 20070215
  2. CAPECITABINE [Suspect]
     Dosage: 3600 MG ON DAY 1-15 EVERY 3 WEEKS
     Route: 065
     Dates: start: 20070215
  3. OXALIPLATIN [Suspect]
     Indication: COLON CANCER
     Route: 042
     Dates: start: 20070215, end: 20070215

REACTIONS (1)
  - DEATH [None]
